FAERS Safety Report 10149205 (Version 1)
Quarter: 2014Q2

REPORT INFORMATION
  Report Type: Spontaneous
  Country: US (occurrence: US)
  Receive Date: 20140502
  Receipt Date: 20140502
  Transmission Date: 20141212
  Serious: No
  Sender: FDA-Public Use
  Company Number: US-TARO-2013P1021909

PATIENT
  Sex: Male

DRUGS (1)
  1. CARBAMAZEPINE EXTENDED RELEASE TABLETS USP 400MG [Suspect]

REACTIONS (5)
  - Medication error [Unknown]
  - Anticonvulsant drug level [Unknown]
  - Erythema [Unknown]
  - Rash [Unknown]
  - Pyrexia [Unknown]
